FAERS Safety Report 8876708 (Version 1)
Quarter: 2012Q4

REPORT INFORMATION
  Report Type: 
  Country: GB (occurrence: GB)
  Receive Date: 20121029
  Receipt Date: 20121029
  Transmission Date: 20130627
  Serious: Yes (Other)
  Sender: FDA-Public Use
  Company Number: GB-PFIZER INC-2012260261

PATIENT
  Age: 71 Year
  Sex: Male

DRUGS (5)
  1. IRINOTECAN HCL [Suspect]
     Indication: COLORECTAL CANCER METASTATIC
  2. ELOXATIN [Suspect]
     Indication: COLORECTAL CANCER METASTATIC
     Dosage: UNK
     Route: 042
     Dates: start: 20070822
  3. FLUOROURACIL [Suspect]
     Indication: COLORECTAL CANCER METASTATIC
  4. FOLINIC ACID [Suspect]
     Indication: COLORECTAL CANCER METASTATIC
  5. CAPECITABINE [Concomitant]
     Indication: NEOPLASM MALIGNANT
     Route: 048
     Dates: start: 20070822, end: 20080102

REACTIONS (1)
  - Neurotoxicity [Recovered/Resolved]
